FAERS Safety Report 9768532 (Version 1)
Quarter: 2013Q4

REPORT INFORMATION
  Report Type: Spontaneous
  Country: US (occurrence: US)
  Receive Date: 20131217
  Receipt Date: 20131217
  Transmission Date: 20140711
  Serious: Yes (Congenital Anomaly, Other)
  Sender: FDA-Public Use
  Company Number: US-JNJFOC-20131208347

PATIENT
  Sex: 0

DRUGS (3)
  1. RANITIDINE [Suspect]
     Indication: ANTACID THERAPY
     Route: 064
  2. FAMOTIDINE [Suspect]
     Route: 064
  3. FAMOTIDINE [Suspect]
     Indication: ANTACID THERAPY
     Route: 064

REACTIONS (3)
  - Foetal exposure during pregnancy [Unknown]
  - Congenital anomaly [Unknown]
  - Heart disease congenital [Unknown]
